FAERS Safety Report 4911644-2 (Version None)
Quarter: 2006Q1

REPORT INFORMATION
  Report Type: 
  Country: None (occurrence: None)
  Receive Date: 20060213
  Receipt Date: 20060202
  Transmission Date: 20060701
  Serious: Yes (Death, Other)
  Sender: FDA-Public Use
  Company Number: 2005093468

PATIENT

DRUGS (5)
  1. SERTRALINE HCL [Suspect]
     Indication: ILL-DEFINED DISORDER
  2. DOXEPIN HCL [Suspect]
     Indication: ILL-DEFINED DISORDER
  3. COCAINE (COCAINE) [Suspect]
     Indication: ILL-DEFINED DISORDER
  4. OXYCODONE HCL [Suspect]
     Indication: ILL-DEFINED DISORDER
  5. LIDOCAINE [Suspect]
     Indication: ILL-DEFINED DISORDER

REACTIONS (4)
  - DRUG ABUSER [None]
  - DRUG INTERACTION [None]
  - DRUG TOXICITY [None]
  - VENTRICULAR HYPERTROPHY [None]
